FAERS Safety Report 5015319-3 (Version None)
Quarter: 2006Q2

REPORT INFORMATION
  Report Type: 
  Country: None (occurrence: None)
  Receive Date: 20060530
  Receipt Date: 20060530
  Transmission Date: 20061013
  Serious: No
  Sender: FDA-Public Use
  Company Number: None

PATIENT
  Age: 50 Year
  Sex: Female
  Weight: 67.1324 kg

DRUGS (2)
  1. INTERFERON ALPHA B [Suspect]
     Indication: MALIGNANT MELANOMA
     Dosage: 20 MIL Q WEEK X 14 WK IV
     Route: 042
     Dates: start: 20051201, end: 20060102
  2. ALPHA B INTERFERON [Concomitant]

REACTIONS (2)
  - CASTLEMAN'S DISEASE [None]
  - HYPERPLASIA [None]
